FAERS Safety Report 6911668-X (Version None)
Quarter: 2010Q3

REPORT INFORMATION
  Report Type: 
  Country: None (occurrence: None)
  Receive Date: 20100806
  Receipt Date: 20100730
  Transmission Date: 20110219
  Serious: Yes (Hospitalization)
  Sender: FDA-Public Use
  Company Number: PHHO2009IT10596

PATIENT
  Sex: Male
  Weight: 79 kg

DRUGS (2)
  1. CERTICAN [Suspect]
     Dosage: OPEN LABEL
     Route: 048
     Dates: start: 20090807, end: 20090826
  2. NEORAL [Suspect]
     Indication: PROPHYLAXIS AGAINST TRANSPLANT REJECTION
     Dosage: OPEN LABEL
     Route: 048
     Dates: start: 20090807, end: 20090826

REACTIONS (2)
  - LYMPHORRHOEA [None]
  - POST PROCEDURAL DRAINAGE [None]
